FAERS Safety Report 4323056-3 (Version None)
Quarter: 2004Q1

REPORT INFORMATION
  Report Type: 
  Country: None (occurrence: None)
  Receive Date: 20040325
  Receipt Date: 20031229
  Transmission Date: 20041129
  Serious: Yes (Other)
  Sender: FDA-Public Use
  Company Number: PHEH2003US11704

PATIENT
  Age: 44 Year
  Sex: Female

DRUGS (5)
  1. ZELNORM [Suspect]
     Indication: IRRITABLE BOWEL SYNDROME
     Dosage: 6 MG, BID
     Route: 048
     Dates: start: 20021113, end: 20031222
  2. CELEXA [Concomitant]
  3. KLONOPIN [Concomitant]
  4. MIRALAX [Concomitant]
  5. PREVACID [Concomitant]

REACTIONS (6)
  - ABDOMINAL PAIN LOWER [None]
  - COLITIS ISCHAEMIC [None]
  - DIARRHOEA HAEMORRHAGIC [None]
  - HAEMORRHOIDS [None]
  - LARGE INTESTINAL ULCER [None]
  - WHITE BLOOD CELL COUNT INCREASED [None]
